FAERS Safety Report 16108827 (Version 1)
Quarter: 2019Q1

REPORT INFORMATION
  Report Type: Spontaneous
  Country: US (occurrence: US)
  Receive Date: 20190323
  Receipt Date: 20190323
  Transmission Date: 20190418
  Serious: Yes (Other)
  Sender: FDA-Public Use
  Company Number: US-TEVA-2019-US-1027207

PATIENT
  Age: 69 Year
  Sex: Female

DRUGS (9)
  1. TEVA BRAND MODAFINIL [Suspect]
     Active Substance: MODAFINIL
     Indication: ASTHENIA
     Route: 065
  2. LAMOTRIGINE. [Suspect]
     Active Substance: LAMOTRIGINE
     Indication: BIPOLAR DISORDER
  3. CLONAZEPAM. [Concomitant]
     Active Substance: CLONAZEPAM
  4. RITALIN [Concomitant]
     Active Substance: METHYLPHENIDATE HYDROCHLORIDE
  5. VYVANSE [Concomitant]
     Active Substance: LISDEXAMFETAMINE DIMESYLATE
  6. ZANAFLEX [Concomitant]
     Active Substance: TIZANIDINE HYDROCHLORIDE
     Indication: MUSCLE RELAXANT THERAPY
  7. WELLBUTRIN [Suspect]
     Active Substance: BUPROPION HYDROCHLORIDE
     Route: 065
  8. LAMOTRIGINE. [Suspect]
     Active Substance: LAMOTRIGINE
     Indication: IRRITABILITY
     Route: 065
  9. ADDERALL [Concomitant]
     Active Substance: AMPHETAMINE ASPARTATE\AMPHETAMINE SULFATE\DEXTROAMPHETAMINE SACCHARATE\DEXTROAMPHETAMINE SULFATE

REACTIONS (8)
  - Heart rate decreased [Unknown]
  - Product use in unapproved indication [Unknown]
  - Depression [Unknown]
  - Wrong technique in product usage process [Unknown]
  - Diabetic microangiopathy [Unknown]
  - Fall [Unknown]
  - Emotional distress [Unknown]
  - Cytomegalovirus infection [Unknown]
